FAERS Safety Report 9461196 (Version 1)
Quarter: 2013Q3

REPORT INFORMATION
  Report Type: Spontaneous
  Country: US (occurrence: None)
  Receive Date: 20130814
  Receipt Date: 20130814
  Transmission Date: 20140515
  Serious: Yes (Other)
  Sender: FDA-Public Use
  Company Number: None

PATIENT
  Age: 44 Year
  Sex: Male
  Weight: 80.9 kg

DRUGS (2)
  1. ETODOLAC [Suspect]
     Indication: PAIN
     Dosage: MG  BID  PO
     Route: 048
     Dates: start: 20130723, end: 20130810
  2. HYDROCHLOROTHIAZIDE/LISINOPRIL [Suspect]
     Indication: HYPERTENSION
     Dosage: MG  EVERY DAY  PO
     Route: 048
     Dates: start: 20130617, end: 20130810

REACTIONS (1)
  - Renal failure acute [None]
